FAERS Safety Report 5828130-8 (Version None)
Quarter: 2008Q3

REPORT INFORMATION
  Report Type: 
  Country: None (occurrence: None)
  Receive Date: 20080729
  Receipt Date: 20080715
  Transmission Date: 20090109
  Serious: Yes (Hospitalization)
  Sender: FDA-Public Use
  Company Number: 100#03#2008-03656

PATIENT
  Age: 34 Year
  Sex: Male

DRUGS (2)
  1. TRAMADOL HCL [Suspect]
     Indication: ANALGESIA
     Dosage: 1 DF (AS NECESSARY);
     Dates: start: 20080620, end: 20080621
  2. VENLAFAXINE HCL [Suspect]
     Indication: DEPRESSION
     Dosage: 150 MG ONCE DAILY;
     Dates: start: 20060527

REACTIONS (4)
  - DYSKINESIA [None]
  - FEELING ABNORMAL [None]
  - MUSCLE SPASMS [None]
  - SOMNOLENCE [None]
